FAERS Safety Report 13061048 (Version 2)
Quarter: 2016Q4

REPORT INFORMATION
  Report Type: Spontaneous
  Country: US (occurrence: US)
  Receive Date: 20161226
  Receipt Date: 20161229
  Transmission Date: 20170207
  Serious: Yes (Other)
  Sender: FDA-Public Use
  Company Number: US-ROCHE-1871560

PATIENT
  Age: 58 Year
  Sex: Female
  Weight: 31.92 kg

DRUGS (7)
  1. OMEPRAZOLE. [Concomitant]
     Active Substance: OMEPRAZOLE
     Route: 048
  2. QUINAPRIL. [Concomitant]
     Active Substance: QUINAPRIL
     Route: 048
  3. SIMVASTATIN. [Concomitant]
     Active Substance: SIMVASTATIN
     Dosage: DAILYBEDTIME
     Route: 048
  4. ACTIVASE [Suspect]
     Active Substance: ALTEPLASE
     Indication: ISCHAEMIC STROKE
     Dosage: 6 MG BOLUS; 57 MG INFUSION; ONE TIME
     Route: 042
     Dates: start: 20161221, end: 20161221
  5. FUROSEMIDE. [Concomitant]
     Active Substance: FUROSEMIDE
     Route: 048
  6. POTASSIUM CHLORIDE. [Concomitant]
     Active Substance: POTASSIUM CHLORIDE
     Route: 065
  7. NIFEDIPINE XL [Concomitant]
     Active Substance: NIFEDIPINE
     Route: 048

REACTIONS (7)
  - Headache [Unknown]
  - Chest pain [Unknown]
  - Aphasia [Unknown]
  - Chest discomfort [Unknown]
  - Angioedema [Recovered/Resolved]
  - Dyspnoea [Unknown]
  - Swollen tongue [Unknown]

NARRATIVE: CASE EVENT DATE: 20161221
